FAERS Safety Report 8993534 (Version 1)
Quarter: 2013Q1

REPORT INFORMATION
  Report Type: Spontaneous
  Country: IL (occurrence: IL)
  Receive Date: 20130102
  Receipt Date: 20130102
  Transmission Date: 20140127
  Serious: Yes (Hospitalization)
  Sender: FDA-Public Use
  Company Number: IL-BRISTOL-MYERS SQUIBB COMPANY-17244229

PATIENT
  Age: 43 Year
  Sex: 0

DRUGS (2)
  1. ABILIFY [Suspect]
     Route: 048
  2. ZYPREXA [Suspect]
     Dosage: DOSE REDUCED AND WITHDRAWN

REACTIONS (3)
  - Restlessness [Unknown]
  - Sleep disorder [Unknown]
  - Delusion [Unknown]
